FAERS Safety Report 20368030 (Version 1)
Quarter: 2022Q1

REPORT INFORMATION
  Report Type: Spontaneous
  Country: US (occurrence: US)
  Receive Date: 20220124
  Receipt Date: 20220124
  Transmission Date: 20220423
  Serious: No
  Sender: FDA-Public Use
  Company Number: US-drreddys-SPO/USA/22/0145977

PATIENT
  Age: 32 Year
  Sex: Male

DRUGS (2)
  1. ZENATANE [Suspect]
     Active Substance: ISOTRETINOIN
     Indication: Product used for unknown indication
     Dosage: RMA ISSUE DATE: 9 DECEMBER 2021 12:37:19 PM, 10 NOVEMBER 2021 12:05:44 PM AND 13 OCTOBER 2021 11:05:
  2. ZENATANE [Suspect]
     Active Substance: ISOTRETINOIN
     Dosage: RMA ISSUE DATE: 15 SEPTEMBER 2021 11:14:35 AM.

REACTIONS (1)
  - Dry eye [Unknown]
